FAERS Safety Report 8015825-3 (Version None)
Quarter: 2011Q4

REPORT INFORMATION
  Report Type: 
  Country: None (occurrence: None)
  Receive Date: 20111228
  Receipt Date: 20111228
  Transmission Date: 20120403
  Serious: Yes (Life-Threatening, Hospitalization)
  Sender: FDA-Public Use
  Company Number: None

PATIENT
  Sex: Male
  Weight: 83 kg

DRUGS (8)
  1. PROVENGE [Suspect]
     Indication: PROSTATE CANCER METASTATIC
     Dates: start: 20111205
  2. PROVENGE [Suspect]
     Indication: PROSTATE CANCER METASTATIC
     Dates: start: 20111208
  3. JUNUVIA [Concomitant]
  4. ASPIRIN [Concomitant]
  5. LUPRON [Concomitant]
  6. STARLIX [Concomitant]
  7. SENNA [Concomitant]
  8. COLACE [Concomitant]

REACTIONS (4)
  - GAIT DISTURBANCE [None]
  - MUSCLE SPASMS [None]
  - MUSCULAR WEAKNESS [None]
  - HAEMORRHAGIC STROKE [None]
